FAERS Safety Report 19172550 (Version 2)
Quarter: 2021Q2

REPORT INFORMATION
  Report Type: Spontaneous
  Country: JP (occurrence: JP)
  Receive Date: 20210423
  Receipt Date: 20210510
  Transmission Date: 20210717
  Serious: Yes (Other)
  Sender: FDA-Public Use
  Company Number: NVSJ2021JP003877

PATIENT
  Sex: Male

DRUGS (1)
  1. BEOVU [Suspect]
     Active Substance: BROLUCIZUMAB-DBLL
     Indication: AGE-RELATED MACULAR DEGENERATION
     Dosage: 6 MG
     Route: 031
     Dates: start: 20210203, end: 20210203

REACTIONS (7)
  - Keratic precipitates [Unknown]
  - Vitritis [Unknown]
  - Vitreal cells [Unknown]
  - Vitreous opacities [Not Recovered/Not Resolved]
  - Uveitis [Unknown]
  - Anterior chamber inflammation [Not Recovered/Not Resolved]
  - Blindness [Unknown]

NARRATIVE: CASE EVENT DATE: 20210302
